FAERS Safety Report 4470222-2 (Version None)
Quarter: 2004Q4

REPORT INFORMATION
  Report Type: 
  Country: None (occurrence: None)
  Receive Date: 20041008
  Receipt Date: 20040929
  Transmission Date: 20050328
  Serious: Yes (Hospitalization)
  Sender: FDA-Public Use
  Company Number: GB-MERCK-0409GBR00272

PATIENT
  Age: 77 Year
  Sex: Male

DRUGS (7)
  1. ACETAMINOPHEN AND PROPOXYPHENE HYDROCHLORIDE [Concomitant]
     Route: 048
  2. ASPIRIN [Suspect]
     Indication: ANTIPLATELET THERAPY
     Route: 048
     Dates: end: 20040914
  3. BENDROFLUMETHIAZIDE [Concomitant]
     Indication: HYPERTENSION
     Route: 048
     Dates: end: 20040914
  4. BISOPROLOL [Concomitant]
     Indication: HYPERTENSION
     Route: 048
     Dates: end: 20040913
  5. DICLOFENAC [Suspect]
     Indication: PAIN
     Route: 048
     Dates: start: 20040801, end: 20040914
  6. PRAVASTATIN SODIUM [Concomitant]
     Indication: BLOOD CHOLESTEROL INCREASED
     Route: 048
  7. VIOXX [Suspect]
     Indication: PAIN
     Route: 048
     Dates: start: 20040701, end: 20040914

REACTIONS (1)
  - MELAENA [None]
